FAERS Safety Report 10366063 (Version 1)
Quarter: 2014Q3

REPORT INFORMATION
  Report Type: Spontaneous
  Country: DE (occurrence: DE)
  Receive Date: 20140806
  Receipt Date: 20140806
  Transmission Date: 20150326
  Serious: Yes (Other)
  Sender: FDA-Public Use
  Company Number: DE-GLAXOSMITHKLINE-D0085073A

PATIENT

DRUGS (2)
  1. SALMETEROL [Suspect]
     Active Substance: SALMETEROL
     Indication: ASTHMA
     Route: 065
  2. VENTOLIN [Concomitant]
     Active Substance: ALBUTEROL SULFATE
     Route: 065

REACTIONS (5)
  - Tremor [Unknown]
  - Tunnel vision [Unknown]
  - Disturbance in attention [Unknown]
  - Heart rate irregular [Unknown]
  - Oral disorder [Unknown]
